FAERS Safety Report 9418956 (Version 2)
Quarter: 2013Q3

REPORT INFORMATION
  Report Type: Spontaneous
  Country: IR (occurrence: IR)
  Receive Date: 20130725
  Receipt Date: 20130918
  Transmission Date: 20140515
  Serious: Yes (Hospitalization)
  Sender: FDA-Public Use
  Company Number: IR-009507513-1307IRN012444

PATIENT
  Age: 46 Year
  Sex: Male
  Weight: 83 kg

DRUGS (7)
  1. VICTRELIS [Suspect]
     Dosage: 800 MG TDS, 2400 MG DAILY
     Route: 048
     Dates: start: 20130430, end: 20130608
  2. VICTRELIS [Suspect]
     Dosage: 2 DF, TID
     Route: 048
     Dates: start: 20130608, end: 20130615
  3. VICTRELIS [Suspect]
     Dosage: (800 MG, TDS )4 DF, TID
     Route: 048
     Dates: start: 20130616
  4. PEG-INTRON [Suspect]
     Dosage: 120 MICROGRAM, QW
     Route: 058
     Dates: start: 20130328
  5. REBETOL [Suspect]
     Dosage: UNK
     Route: 048
     Dates: start: 20130328, end: 20130608
  6. REBETOL [Suspect]
     Dosage: 2 DF, QD
     Route: 048
     Dates: start: 20130608, end: 2013
  7. REBETOL [Suspect]
     Dosage: 400 MG, QD
     Route: 048
     Dates: start: 20130616

REACTIONS (2)
  - Anaemia [Recovered/Resolved]
  - Off label use [Unknown]
